FAERS Safety Report 15862164 (Version 1)
Quarter: 2019Q1

REPORT INFORMATION
  Report Type: Report from Study
  Country: US (occurrence: US)
  Receive Date: 20190124
  Receipt Date: 20190124
  Transmission Date: 20190417
  Serious: Yes (Hospitalization, Other)
  Sender: FDA-Public Use
  Company Number: US-BRISTOL-MYERS SQUIBB COMPANY-BMS-2019-006132

PATIENT
  Age: 58 Year
  Sex: Male
  Weight: 80.3 kg

DRUGS (1)
  1. NIVOLUMAB [Suspect]
     Active Substance: NIVOLUMAB
     Indication: ACUTE MYELOID LEUKAEMIA
     Dosage: 83.4 MG, ONE TIME DOSE
     Route: 042
     Dates: start: 20181130, end: 20181130

REACTIONS (2)
  - Fall [Unknown]
  - Anticholinergic syndrome [Unknown]

NARRATIVE: CASE EVENT DATE: 20181219
